FAERS Safety Report 8030141-1 (Version None)
Quarter: 2012Q1

REPORT INFORMATION
  Report Type: 
  Country: None (occurrence: None)
  Receive Date: 20120109
  Receipt Date: 20111228
  Transmission Date: 20120608
  Serious: Yes (Hospitalization, Other)
  Sender: FDA-Public Use
  Company Number: TW-AMGEN-TWNSP2011069874

PATIENT
  Age: 83 Year
  Sex: Female

DRUGS (7)
  1. SULFASALAZINE [Concomitant]
     Indication: RHEUMATOID ARTHRITIS
     Dosage: UNK
  2. ENBREL [Suspect]
     Indication: RHEUMATOID ARTHRITIS
     Dosage: 25 MG, WEEKLY
     Route: 058
     Dates: start: 20100101, end: 20110802
  3. CELEBREX [Concomitant]
     Indication: RHEUMATOID ARTHRITIS
     Dosage: UNK
  4. PLAQUENIL [Concomitant]
     Indication: RHEUMATOID ARTHRITIS
     Dosage: UNK
  5. UROSIN [Concomitant]
     Indication: HYPERTENSION
     Dosage: UNK
  6. DOMPERIDONE [Concomitant]
     Dosage: UNK
  7. LORAZEPAM [Concomitant]
     Dosage: UNK

REACTIONS (1)
  - HEPATIC NEOPLASM MALIGNANT [None]
